FAERS Safety Report 4864525-7 (Version None)
Quarter: 2005Q4

REPORT INFORMATION
  Report Type: 
  Country: None (occurrence: None)
  Receive Date: 20051222
  Receipt Date: 20051121
  Transmission Date: 20060501
  Serious: Yes (Other)
  Sender: FDA-Public Use
  Company Number: BE-ROCHE-425496

PATIENT
  Age: 34 Year
  Sex: Male
  Weight: 83 kg

DRUGS (5)
  1. PEGASYS [Suspect]
     Route: 065
     Dates: start: 20050815
  2. COPEGUS [Suspect]
     Dosage: DOSAGE REGIMEN REPORTED AS 6/D.
     Route: 065
     Dates: start: 20050815
  3. ACETAMINOPHEN [Concomitant]
     Indication: THERAPEUTIC PROCEDURE
     Dosage: TAKEN AT DAY OF INJECTION.
  4. DESERIL [Concomitant]
     Indication: MIGRAINE
     Dates: start: 20051010, end: 20051122
  5. DOLZAM [Concomitant]
     Indication: MIGRAINE

REACTIONS (3)
  - DYSGEUSIA [None]
  - GINGIVAL DISORDER [None]
  - TOOTH DISORDER [None]
